FAERS Safety Report 9010678 (Version 1)
Quarter: 2013Q1

REPORT INFORMATION
  Report Type: Spontaneous
  Country: US (occurrence: US)
  Receive Date: 20130109
  Receipt Date: 20130109
  Transmission Date: 20140127
  Serious: Yes (Hospitalization, Other)
  Sender: FDA-Public Use
  Company Number: US-PFIZER INC-2013009494

PATIENT
  Age: 44 Year
  Sex: Female
  Weight: 62.59 kg

DRUGS (5)
  1. LYRICA [Suspect]
     Indication: FIBROMYALGIA
     Dosage: UNK, 1X/DAY
     Route: 048
     Dates: end: 2011
  2. ZANAFLEX [Concomitant]
     Dosage: 4 MG, UNK
  3. RESTORIL [Concomitant]
     Dosage: 30 MG, UNK
  4. OXYCODONE [Concomitant]
     Dosage: 30 MG, UNK
  5. LISINOPRIL [Concomitant]
     Dosage: 10 MG, UNK

REACTIONS (2)
  - Pneumonia [Recovered/Resolved]
  - Chronic obstructive pulmonary disease [Unknown]
